FAERS Safety Report 18386065 (Version 2)
Quarter: 2021Q1

REPORT INFORMATION
  Report Type: Report from Study
  Country: GB (occurrence: GB)
  Receive Date: 20201015
  Receipt Date: 20210218
  Transmission Date: 20210419
  Serious: Yes (Hospitalization)
  Sender: FDA-Public Use
  Company Number: GB-ROCHE-2695830

PATIENT
  Age: 66 Year
  Sex: Female
  Weight: 48.8 kg

DRUGS (5)
  1. ATEZOLIZUMAB. [Suspect]
     Active Substance: ATEZOLIZUMAB
     Indication: LUNG NEOPLASM MALIGNANT
     Dosage: DAY 1 OF 21 DAY CYCLE?DATE OF LAST ADMINISTRATION PRIOR TO SAE 23/SEP/2020.
     Route: 041
     Dates: start: 20200923
  2. MORPHINE SULFATE. [Concomitant]
     Active Substance: MORPHINE SULFATE
     Indication: DYSPNOEA
  3. KLIOFEM [Concomitant]
     Active Substance: ESTRADIOL\NORETHINDRONE ACETATE
     Indication: HORMONE REPLACEMENT THERAPY
     Dosage: 2MG/1MG, DATE OF LAST ADMINISTRATION PRIOR TO SAE 12/OCT/2020
     Route: 048
     Dates: start: 20200819
  4. ATEZOLIZUMAB. [Suspect]
     Active Substance: ATEZOLIZUMAB
     Dosage: ATEZOLIZUMAB WAS REINTRODUCED.
     Route: 041
     Dates: start: 20201028
  5. MORPHINE SULFATE. [Concomitant]
     Active Substance: MORPHINE SULFATE
     Indication: PAIN
     Dosage: 10MG/5ML
     Route: 048
     Dates: start: 20200907

REACTIONS (1)
  - Headache [Recovered/Resolved]

NARRATIVE: CASE EVENT DATE: 20200925
